FAERS Safety Report 24579296 (Version 1)
Quarter: 2024Q4

REPORT INFORMATION
  Report Type: Spontaneous
  Country: US (occurrence: US)
  Receive Date: 20241105
  Receipt Date: 20241105
  Transmission Date: 20250115
  Serious: Yes (Hospitalization, Other)
  Sender: AUROBINDO
  Company Number: US-AUROBINDO-AUR-APL-2024-053365

PATIENT
  Age: 67 Year
  Sex: Male

DRUGS (26)
  1. CARFILZOMIB [Suspect]
     Active Substance: CARFILZOMIB
     Indication: Plasma cell myeloma
     Dosage: UNK
     Route: 065
  2. CYCLOPHOSPHAMIDE [Suspect]
     Active Substance: CYCLOPHOSPHAMIDE
     Indication: Plasma cell myeloma
     Dosage: 2 GRAM PER SQUARE METRE
     Route: 042
  3. CYCLOPHOSPHAMIDE [Suspect]
     Active Substance: CYCLOPHOSPHAMIDE
     Indication: Neurotoxicity
  4. CYCLOPHOSPHAMIDE [Suspect]
     Active Substance: CYCLOPHOSPHAMIDE
     Indication: Lymphodepletion
  5. DEXAMETHASONE [Suspect]
     Active Substance: DEXAMETHASONE
     Indication: Plasma cell myeloma
     Dosage: 10 MILLIGRAM, 3 TIMES A DAY
     Route: 065
  6. DEXAMETHASONE [Suspect]
     Active Substance: DEXAMETHASONE
     Indication: Parkinsonism
  7. POMALIDOMIDE [Suspect]
     Active Substance: POMALIDOMIDE
     Indication: Plasma cell myeloma
     Dosage: UNK
     Route: 065
  8. POMALIDOMIDE [Suspect]
     Active Substance: POMALIDOMIDE
     Indication: Parkinsonism
  9. DARATUMUMAB [Suspect]
     Active Substance: DARATUMUMAB
     Indication: Plasma cell myeloma
     Dosage: UNK
     Route: 065
  10. FLUDARABINE [Suspect]
     Active Substance: FLUDARABINE PHOSPHATE
     Indication: Lymphodepletion
     Dosage: UNK
     Route: 065
  11. TOCILIZUMAB [Suspect]
     Active Substance: TOCILIZUMAB
     Indication: Immune effector cell-associated neurotoxicity syndrome
     Dosage: UNK
     Route: 065
  12. HUMAN IMMUNOGLOBULIN G [Suspect]
     Active Substance: HUMAN IMMUNOGLOBULIN G
     Indication: Apathy
     Dosage: 2 GRAM PER KILOGRAM
     Route: 042
  13. CILTACABTAGENE AUTOLEUCEL [Suspect]
     Active Substance: CILTACABTAGENE AUTOLEUCEL
     Indication: Plasma cell myeloma
     Dosage: UNK
     Route: 065
  14. THALIDOMIDE [Suspect]
     Active Substance: THALIDOMIDE
     Indication: Plasma cell myeloma
     Dosage: UNK
     Route: 065
  15. CISPLATIN [Suspect]
     Active Substance: CISPLATIN
     Indication: Plasma cell myeloma
     Dosage: UNK
     Route: 065
  16. ETOPOSIDE [Suspect]
     Active Substance: ETOPOSIDE
     Indication: Plasma cell myeloma
     Dosage: UNK
     Route: 065
  17. SELINEXOR [Suspect]
     Active Substance: SELINEXOR
     Indication: Plasma cell myeloma
     Dosage: UNK
     Route: 065
  18. AMANTADINE [Concomitant]
     Active Substance: AMANTADINE
     Indication: Muscle rigidity
     Dosage: 100 MILLIGRAM, TWO TIMES A DAY
     Route: 065
  19. AMANTADINE [Concomitant]
     Active Substance: AMANTADINE
     Indication: Bradykinesia
  20. AMANTADINE [Concomitant]
     Active Substance: AMANTADINE
     Indication: Apathy
  21. CARBIDOPA\LEVODOPA [Concomitant]
     Active Substance: CARBIDOPA\LEVODOPA
     Indication: Apathy
     Dosage: 1 DOSAGE FORM, 3 TIMES A DAY
     Route: 065
  22. CARBIDOPA\LEVODOPA [Concomitant]
     Active Substance: CARBIDOPA\LEVODOPA
     Indication: Bradykinesia
     Dosage: 3 DOSAGE FORM, 3 TIMES A DAY
  23. CARBIDOPA\LEVODOPA [Concomitant]
     Active Substance: CARBIDOPA\LEVODOPA
     Indication: Muscle rigidity
  24. ROPINIROLE [Concomitant]
     Active Substance: ROPINIROLE
     Indication: Muscle rigidity
     Dosage: 1 MILLIGRAM, 3 TIMES A DAY
  25. ROPINIROLE [Concomitant]
     Active Substance: ROPINIROLE
     Indication: Bradykinesia
     Dosage: 2 MILLIGRAM, 3 TIMES A DAY
     Route: 065
  26. ROPINIROLE [Concomitant]
     Active Substance: ROPINIROLE
     Indication: Apathy

REACTIONS (8)
  - Haemoptysis [Unknown]
  - Sepsis [Unknown]
  - Pneumonia [Unknown]
  - Respiratory syncytial virus infection [Unknown]
  - Cytokine release syndrome [Unknown]
  - Staphylococcal infection [Unknown]
  - Drug ineffective [Unknown]
  - Immune effector cell-associated neurotoxicity syndrome [Unknown]
